FAERS Safety Report 5835067-7 (Version None)
Quarter: 2008Q3

REPORT INFORMATION
  Report Type: 
  Country: None (occurrence: None)
  Receive Date: 20080805
  Receipt Date: 20080805
  Transmission Date: 20090109
  Serious: Yes (Life-Threatening, Hospitalization, Other)
  Sender: FDA-Public Use
  Company Number: None

PATIENT
  Age: 24 Year
  Sex: Female
  Weight: 77.1115 kg

DRUGS (1)
  1. SULFAMETHOXAZOLE AND TRIMETHOPRIM [Suspect]
     Indication: SWEAT GLAND INFECTION
     Dosage: 1 TABLET 2 TIMES DAILY
     Dates: start: 20080418, end: 20080425

REACTIONS (1)
  - STEVENS-JOHNSON SYNDROME [None]
